FAERS Safety Report 7394154-5 (Version None)
Quarter: 2011Q1

REPORT INFORMATION
  Report Type: 
  Country: None (occurrence: None)
  Receive Date: 20110325
  Receipt Date: 20110311
  Transmission Date: 20110831
  Serious: Yes (Other)
  Sender: FDA-Public Use
  Company Number: 2010-3951

PATIENT
  Age: 49 Year
  Sex: Female

DRUGS (7)
  1. DYSPORT [Suspect]
     Indication: MUSCLE SPASTICITY
     Dosage: 1900 UNITS (1900 UNITS,SINGLE CYCLE),INTRAMUSCULAR ; (SINGLE CYCLE),INTRAMUSCULAR
     Route: 030
     Dates: start: 20100202, end: 20100202
  2. DYSPORT [Suspect]
     Indication: OFF LABEL USE
     Dosage: 1900 UNITS (1900 UNITS,SINGLE CYCLE),INTRAMUSCULAR ; (SINGLE CYCLE),INTRAMUSCULAR
     Route: 030
     Dates: start: 20100202, end: 20100202
  3. DYSPORT [Suspect]
     Indication: SALIVARY HYPERSECRETION
     Dosage: 1900 UNITS (1900 UNITS,SINGLE CYCLE),INTRAMUSCULAR ; (SINGLE CYCLE),INTRAMUSCULAR
     Route: 030
     Dates: start: 20100202, end: 20100202
  4. DYSPORT [Suspect]
     Indication: MUSCLE SPASTICITY
     Dosage: 1900 UNITS (1900 UNITS,SINGLE CYCLE),INTRAMUSCULAR ; (SINGLE CYCLE),INTRAMUSCULAR
     Route: 030
     Dates: start: 20100907, end: 20100907
  5. DYSPORT [Suspect]
     Indication: OFF LABEL USE
     Dosage: 1900 UNITS (1900 UNITS,SINGLE CYCLE),INTRAMUSCULAR ; (SINGLE CYCLE),INTRAMUSCULAR
     Route: 030
     Dates: start: 20100907, end: 20100907
  6. DYSPORT [Suspect]
     Indication: SALIVARY HYPERSECRETION
     Dosage: 1900 UNITS (1900 UNITS,SINGLE CYCLE),INTRAMUSCULAR ; (SINGLE CYCLE),INTRAMUSCULAR
     Route: 030
     Dates: start: 20100907, end: 20100907
  7. MULTIPLE UNSPECIFIED MEDICATIONS(ALL OTHER THERAPEUTIC PRODUCTS) [Concomitant]

REACTIONS (4)
  - PRODUCT QUALITY ISSUE [None]
  - OFF LABEL USE [None]
  - CONDITION AGGRAVATED [None]
  - DYSPHAGIA [None]
